FAERS Safety Report 4975450-5 (Version None)
Quarter: 2006Q2

REPORT INFORMATION
  Report Type: 
  Country: None (occurrence: None)
  Receive Date: 20060418
  Receipt Date: 20050315
  Transmission Date: 20061013
  Serious: Yes (Hospitalization, Other)
  Sender: FDA-Public Use
  Company Number: US-MERCK-0503USA03226

PATIENT
  Age: 47 Year
  Sex: Male
  Weight: 91 kg

DRUGS (13)
  1. VIOXX [Suspect]
     Indication: ARTHRALGIA
     Route: 048
     Dates: start: 20000303, end: 20020101
  2. VIOXX [Suspect]
     Route: 048
     Dates: start: 20000308, end: 20001127
  3. VIOXX [Suspect]
     Route: 048
     Dates: start: 20010402, end: 20020415
  4. VIOXX [Suspect]
     Route: 048
     Dates: start: 20010101, end: 20040101
  5. LEVAQUIN [Concomitant]
     Route: 065
  6. FLAGYL [Concomitant]
     Route: 065
  7. BUSPAR [Concomitant]
     Route: 065
  8. CLONIDINE [Concomitant]
     Route: 065
  9. KLONOPIN [Concomitant]
     Route: 065
  10. NEUTRA-PHOS [Concomitant]
     Indication: DIALYSIS
     Route: 065
  11. PHOSLO [Concomitant]
     Indication: DIALYSIS
     Route: 065
  12. NITRO [Concomitant]
     Indication: DIALYSIS
     Route: 065
  13. NEOSTERON [Concomitant]
     Indication: DIALYSIS
     Route: 065

REACTIONS (11)
  - AORTIC VALVE INCOMPETENCE [None]
  - BRONCHIECTASIS [None]
  - CARDIAC FAILURE CONGESTIVE [None]
  - CHEST PAIN [None]
  - DYSPNOEA [None]
  - MITRAL VALVE INCOMPETENCE [None]
  - MYOCARDIAL INFARCTION [None]
  - ORTHOPNOEA [None]
  - PNEUMONITIS [None]
  - RESPIRATORY TRACT INFECTION [None]
  - TRICUSPID VALVE INCOMPETENCE [None]
